FAERS Safety Report 14509355 (Version 4)
Quarter: 2018Q2

REPORT INFORMATION
  Report Type: Spontaneous
  Country: JP (occurrence: JP)
  Receive Date: 20180209
  Receipt Date: 20180405
  Transmission Date: 20180711
  Serious: Yes (Other)
  Sender: FDA-Public Use
  Company Number: JP-GLAXOSMITHKLINE-JP2018JPN019525

PATIENT
  Age: 37 Year
  Sex: Female

DRUGS (7)
  1. NEUROTROPIN (JAPAN) [Concomitant]
     Dosage: UNK
  2. PREDONINE [Concomitant]
     Active Substance: PREDNISOLONE
     Dosage: 22 MG, 1D
  3. RIMATIL [Concomitant]
     Active Substance: BUCILLAMINE
     Dosage: 300 MG, 1D
  4. NITROPEN [Concomitant]
     Active Substance: NITROGLYCERIN
     Indication: MYOCARDIAL INFARCTION
     Dosage: UNK
     Dates: start: 2017
  5. PAXIL [Concomitant]
     Active Substance: PAROXETINE HYDROCHLORIDE
     Dosage: 10 MG, 1D
  6. SERETIDE [Suspect]
     Active Substance: FLUTICASONE PROPIONATE\SALMETEROL XINAFOATE
     Indication: ASTHMA
     Dosage: 500 ?G, 1D
     Route: 055
     Dates: start: 2016
  7. SELBEX [Concomitant]
     Active Substance: TEPRENONE
     Dosage: 150 MG, 1D

REACTIONS (1)
  - Cardiac discomfort [Recovering/Resolving]

NARRATIVE: CASE EVENT DATE: 20180205
